FAERS Safety Report 6804907-7 (Version None)
Quarter: 2010Q2

REPORT INFORMATION
  Report Type: 
  Country: None (occurrence: None)
  Receive Date: 20100628
  Receipt Date: 20070727
  Transmission Date: 20101027
  Serious: No
  Sender: FDA-Public Use
  Company Number: US-PFIZER INC-2007037722

PATIENT
  Sex: Female
  Weight: 56.8 kg

DRUGS (3)
  1. XALATAN [Suspect]
     Indication: GLAUCOMA
     Route: 047
     Dates: start: 20070417, end: 20070421
  2. LITHIUM [Concomitant]
  3. SYNTHROID [Concomitant]

REACTIONS (1)
  - ABDOMINAL DISCOMFORT [None]
